FAERS Safety Report 10191248 (Version 2)
Quarter: 2014Q2

REPORT INFORMATION
  Report Type: Spontaneous
  Country: US (occurrence: None)
  Receive Date: 20140521
  Receipt Date: 20140529
  Transmission Date: 20141212
  Serious: Yes (Death)
  Sender: FDA-Public Use
  Company Number: 2014P1003953

PATIENT
  Age: 74 Year
  Sex: Male
  Weight: 77.11 kg

DRUGS (3)
  1. ATENOLOL [Suspect]
     Indication: HYPERTENSION
     Route: 048
     Dates: start: 2012, end: 20130319
  2. LISINOPRIL [Concomitant]
  3. WARFARIN [Concomitant]

REACTIONS (6)
  - Loss of consciousness [None]
  - Road traffic accident [None]
  - Ventricular fibrillation [None]
  - Cardiac arrest [None]
  - Flail chest [None]
  - Apnoea [None]
